FAERS Safety Report 7831892-1 (Version None)
Quarter: 2011Q4

REPORT INFORMATION
  Report Type: 
  Country: None (occurrence: None)
  Receive Date: 20111021
  Receipt Date: 20111013
  Transmission Date: 20120403
  Serious: Yes (Life-Threatening, Hospitalization, Other)
  Sender: FDA-Public Use
  Company Number: US-ABBOTT-11P-163-0855410-00

PATIENT
  Sex: Female
  Weight: 86.26 kg

DRUGS (3)
  1. COMMERCIAL ADALIMUMAB [Concomitant]
     Route: 058
  2. COMMERCIAL ADALIMUMAB [Concomitant]
     Indication: PSORIASIS
     Dosage: ONCE
     Route: 058
     Dates: start: 20090923, end: 20090923
  3. HUMIRA [Suspect]
     Indication: PSORIASIS
     Route: 058
     Dates: start: 20100331, end: 20110901

REACTIONS (1)
  - BREAST CANCER METASTATIC [None]
